FAERS Safety Report 14306796 (Version 5)
Quarter: 2018Q1

REPORT INFORMATION
  Report Type: Spontaneous
  Country: JP (occurrence: JP)
  Receive Date: 20171220
  Receipt Date: 20180118
  Transmission Date: 20180509
  Serious: Yes (Hospitalization, Other)
  Sender: FDA-Public Use
  Company Number: JP-AMGEN-JPNSP2017186515

PATIENT
  Age: 69 Year
  Sex: Male

DRUGS (17)
  1. CARTARETIN [Concomitant]
     Active Substance: CALCIUM CARBONATE
     Dosage: UNK
     Dates: end: 20171209
  2. SIFROL [Concomitant]
     Active Substance: PRAMIPEXOLE
     Dosage: UNK
     Dates: end: 20171209
  3. OXAROL [Concomitant]
     Active Substance: MAXACALCITOL
     Dosage: UNK
     Dates: end: 20171223
  4. LOPERAMIDE [Concomitant]
     Active Substance: LOPERAMIDE
     Dosage: 2 DF, TID (AFTER EACH MEAL)
     Dates: start: 20171213
  5. FOSRENOL [Concomitant]
     Active Substance: LANTHANUM CARBONATE
     Dosage: UNK
     Dates: end: 20171209
  6. LANSOPRAZOLE. [Concomitant]
     Active Substance: LANSOPRAZOLE
     Dosage: UNK
     Dates: end: 20171209
  7. AZILVA [Concomitant]
     Active Substance: AZILSARTAN KAMEDOXOMIL
     Dosage: 1 DF, QD (AFTER BREAKFAST)
  8. MYSLEE [Concomitant]
     Active Substance: ZOLPIDEM TARTRATE
     Dosage: 1 DF, QD (BEFORE BEDTIME)
  9. AMLODIPINE [Concomitant]
     Active Substance: AMLODIPINE BESYLATE
     Dosage: 1 DF, QD (AFTER BREAKFAST)
  10. POLYCARBOPHIL CA [Concomitant]
     Active Substance: CALCIUM POLYCARBOPHIL
     Dosage: 1 DF, TID (AFTER EACH MEAL)
     Dates: start: 20171213
  11. BI SIFROL [Concomitant]
     Active Substance: PRAMIPEXOLE
     Dosage: 1 DF, QD (BEFORE BEDTIME)
     Dates: start: 20171213
  12. PARSABIV [Suspect]
     Active Substance: ETELCALCETIDE HYDROCHLORIDE
     Indication: HYPERPARATHYROIDISM SECONDARY
     Dosage: 5 MG, 3 TIMES/WK
     Route: 042
     Dates: start: 20170815
  13. NESP [Concomitant]
     Active Substance: DARBEPOETIN ALFA
     Dosage: 20 MUG, QWK
     Dates: end: 20171219
  14. NESP [Concomitant]
     Active Substance: DARBEPOETIN ALFA
     Dosage: 40 MUG, QWK
     Dates: start: 20171226
  15. ALFAROL [Concomitant]
     Active Substance: ALFACALCIDOL
     Dosage: UNK
     Dates: end: 20171209
  16. MIYA-BM [Concomitant]
     Active Substance: CLOSTRIDIUM BUTYRICUM SPORES STRAIN M-55
     Dosage: 1 DF, TID (AFTER EACH MEAL)
     Dates: start: 20171213
  17. NEXIUM [Concomitant]
     Active Substance: ESOMEPRAZOLE MAGNESIUM
     Dosage: 1 DF, QD (AFTER BREAKFAST)
     Dates: start: 20171213

REACTIONS (1)
  - Ischaemic enteritis [Recovered/Resolved]

NARRATIVE: CASE EVENT DATE: 20171208
